FAERS Safety Report 6407577-5 (Version None)
Quarter: 2009Q4

REPORT INFORMATION
  Report Type: 
  Country: None (occurrence: None)
  Receive Date: 20091020
  Receipt Date: 20091014
  Transmission Date: 20100525
  Serious: Yes (Death, Other)
  Sender: FDA-Public Use
  Company Number: SK-CELGENEUS-260-50794-09100726

PATIENT
  Sex: Female

DRUGS (4)
  1. VIDAZA [Suspect]
     Route: 058
     Dates: start: 20090901, end: 20090901
  2. ANTIBIOTICS [Concomitant]
     Indication: BODY TEMPERATURE INCREASED
     Route: 065
  3. BLOOD CONCENTRATE [Concomitant]
     Indication: THROMBOCYTOPENIA
     Route: 065
  4. THROMBOCYTES CONCENTRATE [Concomitant]
     Indication: THROMBOCYTOPENIA
     Route: 065

REACTIONS (2)
  - ACUTE MYELOID LEUKAEMIA [None]
  - DEPRESSED LEVEL OF CONSCIOUSNESS [None]
